FAERS Safety Report 7316510-3 (Version None)
Quarter: 2011Q1

REPORT INFORMATION
  Report Type: 
  Country: None (occurrence: None)
  Receive Date: 20110226
  Receipt Date: 20100729
  Transmission Date: 20110831
  Serious: Yes (Other)
  Sender: FDA-Public Use
  Company Number: US-ALLERGAN-1008672US

PATIENT
  Age: 65 Year
  Sex: Male
  Weight: 115.19 kg

DRUGS (2)
  1. BOTOXA? [Suspect]
     Indication: TORTICOLLIS
     Dosage: 300 UNITS, SINGLE
     Route: 030
     Dates: start: 20100701, end: 20100701
  2. BOTOXA? [Suspect]
     Dosage: UNK
     Dates: start: 20100401, end: 20100401

REACTIONS (3)
  - DYSPHAGIA [None]
  - HYPOAESTHESIA FACIAL [None]
  - HYPOAESTHESIA [None]
